FAERS Safety Report 13494984 (Version 3)
Quarter: 2017Q2

REPORT INFORMATION
  Report Type: Spontaneous
  Country: CA (occurrence: CA)
  Receive Date: 20170428
  Receipt Date: 20170515
  Transmission Date: 20170830
  Serious: Yes (Hospitalization)
  Sender: FDA-Public Use
  Company Number: CA-HORIZON-RAV-0121-2017

PATIENT
  Age: 3 Year
  Sex: Female
  Weight: 20 kg

DRUGS (3)
  1. RAVICTI [Suspect]
     Active Substance: GLYCEROL PHENYLBUTYRATE
     Indication: ORNITHINE TRANSCARBAMOYLASE DEFICIENCY
     Dosage: 1.5 ML 3 TIMES DAILY
     Dates: start: 20170414
  2. CITRULLINE [Concomitant]
     Active Substance: CITRULLINE
  3. PHEBURANE [Concomitant]
     Dates: start: 20170407, end: 201704

REACTIONS (2)
  - International normalised ratio increased [Recovered/Resolved]
  - Hepatic enzyme increased [Recovered/Resolved]

NARRATIVE: CASE EVENT DATE: 20170421
